FAERS Safety Report 8468791-0 (Version None)
Quarter: 2012Q2

REPORT INFORMATION
  Report Type: 
  Country: None (occurrence: None)
  Receive Date: 20120626
  Receipt Date: 20120611
  Transmission Date: 20120825
  Serious: Yes (Hospitalization, Other)
  Sender: FDA-Public Use
  Company Number: IN-WATSON-2012-10459

PATIENT
  Age: 24 Year
  Sex: Female

DRUGS (1)
  1. AMLODIPINE [Suspect]
     Indication: SUICIDE ATTEMPT
     Dosage: 56 TABLETS OF 5 MG, SINGLE (280MG TOTAL)
     Route: 048

REACTIONS (11)
  - VOMITING [None]
  - HYPOTENSION [None]
  - URINE OUTPUT DECREASED [None]
  - INTENTIONAL OVERDOSE [None]
  - NAUSEA [None]
  - RESPIRATORY RATE INCREASED [None]
  - TACHYCARDIA [None]
  - DYSPNOEA [None]
  - ABDOMINAL PAIN [None]
  - ANXIETY [None]
  - CREPITATIONS [None]
